FAERS Safety Report 6746352-9 (Version None)
Quarter: 2010Q2

REPORT INFORMATION
  Report Type: 
  Country: None (occurrence: None)
  Receive Date: 20100528
  Receipt Date: 20100519
  Transmission Date: 20101027
  Serious: Yes (Hospitalization)
  Sender: FDA-Public Use
  Company Number: FR-PFIZER INC-2010062618

PATIENT
  Age: 57 Year
  Sex: Male

DRUGS (3)
  1. ALDACTONE [Suspect]
     Indication: OEDEMA PERIPHERAL
     Dosage: UNK
     Route: 048
     Dates: end: 20091215
  2. VENTOLIN [Concomitant]
     Route: 055
  3. SYMBICORT [Concomitant]
     Route: 055

REACTIONS (1)
  - HEPATIC ENCEPHALOPATHY [None]
